FAERS Safety Report 10141834 (Version 2)
Quarter: 2014Q2

REPORT INFORMATION
  Report Type: Report from Study
  Country: US (occurrence: US)
  Receive Date: 20140429
  Receipt Date: 20140604
  Transmission Date: 20141212
  Serious: Yes (Hospitalization)
  Sender: FDA-Public Use
  Company Number: PHEH2014US008157

PATIENT
  Age: 17 Year
  Sex: Female
  Weight: 100 kg

DRUGS (9)
  1. TOBI PODHALER [Suspect]
     Indication: CYSTIC FIBROSIS
     Dosage: 112 MG, BID (TWICE A DAY )
     Route: 055
     Dates: start: 201307
  2. PREDNISONE [Concomitant]
     Dosage: UNK
  3. URSODIOL [Concomitant]
     Dosage: UNK
  4. OMEPRAZOLE [Concomitant]
     Dosage: UNK
  5. AZITHROMYCIN [Concomitant]
     Dosage: UNK
  6. PULMOZYME [Concomitant]
     Dosage: UNK
  7. ALBUTEROL [Concomitant]
     Dosage: UNK
  8. RHINOCORT [Concomitant]
     Dosage: UNK
  9. CREON [Concomitant]
     Dosage: UNK

REACTIONS (2)
  - Pseudomonas infection [Not Recovered/Not Resolved]
  - Pulmonary function test decreased [Not Recovered/Not Resolved]
